FAERS Safety Report 14160676 (Version 1)
Quarter: 2017Q4

REPORT INFORMATION
  Report Type: Spontaneous
  Country: US (occurrence: US)
  Receive Date: 20171105
  Receipt Date: 20171105
  Transmission Date: 20180321
  Serious: No
  Sender: FDA-Public Use
  Company Number: US-SHIRE-US201727792

PATIENT
  Age: 53 Year
  Sex: Male

DRUGS (1)
  1. GATTEX [Suspect]
     Active Substance: TEDUGLUTIDE\WATER
     Indication: SHORT-BOWEL SYNDROME
     Dosage: .34 ML, UNK, 1
     Route: 065
     Dates: start: 20151106

REACTIONS (2)
  - Bowel movement irregularity [Unknown]
  - Liver function test increased [Unknown]

NARRATIVE: CASE EVENT DATE: 20171002
